FAERS Safety Report 21633745 (Version 1)
Quarter: 2022Q4

REPORT INFORMATION
  Report Type: Spontaneous
  Country: US (occurrence: None)
  Receive Date: 20221123
  Receipt Date: 20221123
  Transmission Date: 20230113
  Serious: Yes (Hospitalization)
  Sender: FDA-Public Use
  Company Number: None

PATIENT
  Age: 83 Year
  Sex: Female

DRUGS (2)
  1. JAKAFI [Suspect]
     Active Substance: RUXOLITINIB
     Dosage: FREQUENCY : DAILY;?
     Route: 048
  2. JAKAFI [Concomitant]
     Active Substance: RUXOLITINIB
     Dates: start: 20190131

REACTIONS (4)
  - Arthropod bite [None]
  - Infection [None]
  - Fall [None]
  - Facial bones fracture [None]

NARRATIVE: CASE EVENT DATE: 20221116
